FAERS Safety Report 19408646 (Version 1)
Quarter: 2021Q2

REPORT INFORMATION
  Report Type: Spontaneous
  Country: GB (occurrence: GB)
  Receive Date: 20210613
  Receipt Date: 20210613
  Transmission Date: 20210717
  Serious: Yes (Other)
  Sender: FDA-Public Use
  Company Number: GB-TEVA-2021-GB-1920893

PATIENT
  Age: 30 Year
  Sex: Male
  Weight: 65 kg

DRUGS (1)
  1. BECLOMETHASONE [Suspect]
     Active Substance: BECLOMETHASONE
     Route: 065

REACTIONS (3)
  - Swelling [Recovered/Resolved]
  - Lip swelling [Recovering/Resolving]
  - Paraesthesia [Recovered/Resolved]

NARRATIVE: CASE EVENT DATE: 20210530
